FAERS Safety Report 12252975 (Version 1)
Quarter: 2016Q2

REPORT INFORMATION
  Report Type: Report from Study
  Country: IT (occurrence: IT)
  Receive Date: 20160411
  Receipt Date: 20160411
  Transmission Date: 20160815
  Serious: Yes (Hospitalization)
  Sender: FDA-Public Use
  Company Number: IT-ABBVIE-16K-083-1585783-00

PATIENT
  Age: 71 Year
  Sex: Female

DRUGS (1)
  1. DUODOPA [Suspect]
     Active Substance: CARBIDOPA\LEVODOPA
     Indication: PARKINSON^S DISEASE
     Dosage: MD 7.2, CR 2.5, ED 1.3
     Route: 050
     Dates: start: 20160308

REACTIONS (2)
  - Pneumothorax [Unknown]
  - Barotrauma [Unknown]

NARRATIVE: CASE EVENT DATE: 20160309
